APPROVED DRUG PRODUCT: DOXY-LEMMON
Active Ingredient: DOXYCYCLINE HYCLATE
Strength: EQ 50MG BASE
Dosage Form/Route: CAPSULE;ORAL
Application: A062497 | Product #001
Applicant: TEVA PHARMACEUTICALS USA INC
Approved: Aug 23, 1984 | RLD: No | RS: No | Type: DISCN